FAERS Safety Report 18235382 (Version 1)
Quarter: 2020Q3

REPORT INFORMATION
  Report Type: Spontaneous
  Country: SA (occurrence: SA)
  Receive Date: 20200905
  Receipt Date: 20200905
  Transmission Date: 20201103
  Serious: Yes (Hospitalization)
  Sender: FDA-Public Use
  Company Number: SA-LUPIN PHARMACEUTICALS INC.-2020-05464

PATIENT
  Age: 69 Year
  Sex: Female

DRUGS (6)
  1. MORPHINE [Suspect]
     Active Substance: MORPHINE
     Indication: MUSCULOSKELETAL PAIN
     Dosage: 5 MILLIGRAM, UNK
     Route: 042
  2. MORPHINE [Suspect]
     Active Substance: MORPHINE
     Dosage: 5 MILLIGRAM, UNK (AFTER 5 MINUTES OF THE INITIAL DOSE)
     Route: 042
  3. MORPHINE [Suspect]
     Active Substance: MORPHINE
     Dosage: 4 MILLIGRAM, UNK (20 MIN AFTER PRESENTATION)
     Route: 042
  4. KETAMINE [Suspect]
     Active Substance: KETAMINE
     Indication: MUSCULOSKELETAL PAIN
     Dosage: 16 MILLIGRAM (0.19 MG/KG), UNK
     Route: 042
  5. AMITRIPTYLINE [Concomitant]
     Active Substance: AMITRIPTYLINE
     Indication: PRODUCT USED FOR UNKNOWN INDICATION
     Dosage: 10 MILLIGRAM, QD
     Route: 065
  6. ONDANSETRON [Concomitant]
     Active Substance: ONDANSETRON
     Indication: PRODUCT USED FOR UNKNOWN INDICATION
     Dosage: 4 MILLIGRAM, UNK
     Route: 065

REACTIONS (4)
  - Slow speech [Recovered/Resolved]
  - Neuropsychiatric symptoms [Recovered/Resolved]
  - Amnesia [Not Recovered/Not Resolved]
  - Confusional state [Recovered/Resolved]
